FAERS Safety Report 7034323-7 (Version None)
Quarter: 2010Q4

REPORT INFORMATION
  Report Type: 
  Country: None (occurrence: None)
  Receive Date: 20101008
  Receipt Date: 20100924
  Transmission Date: 20110411
  Serious: Yes (Other)
  Sender: FDA-Public Use
  Company Number: US-ENDO PHARMACEUTICALS INC.-SPLN20100029

PATIENT
  Sex: Female
  Weight: 37.6 kg

DRUGS (2)
  1. SUPPRELIN LA [Suspect]
     Indication: PRECOCIOUS PUBERTY
     Dosage: 50 MG
     Dates: start: 20090809, end: 20100927
  2. SUPPRELIN LA [Suspect]
     Dosage: 50 MG
     Route: 058
     Dates: start: 20100817, end: 20100927

REACTIONS (4)
  - DRUG INEFFECTIVE [None]
  - HENOCH-SCHONLEIN PURPURA [None]
  - PROCEDURAL COMPLICATION [None]
  - RASH [None]
